FAERS Safety Report 6585543-7 (Version None)
Quarter: 2010Q1

REPORT INFORMATION
  Report Type: 
  Country: None (occurrence: None)
  Receive Date: 20100201
  Receipt Date: 20090720
  Transmission Date: 20100710
  Serious: Yes (Hospitalization)
  Sender: FDA-Public Use
  Company Number: 8049264

PATIENT
  Sex: Female
  Weight: 35.8 kg

DRUGS (5)
  1. KEPPRA [Suspect]
     Indication: CONVULSION
     Dosage: 15 ML BID ORAL
     Route: 048
     Dates: start: 20070101, end: 20090401
  2. LEVETIRACETAM [Suspect]
     Indication: CONVULSION
     Dosage: 15 ML BID ORAL
     Route: 048
     Dates: start: 20090401
  3. LACOSAMIDE [Suspect]
     Indication: CONVULSION
     Dosage: 100 MG BID ORAL, 150 MG BID ORAL
     Route: 048
     Dates: end: 20090701
  4. LACOSAMIDE [Suspect]
     Indication: CONVULSION
     Dosage: 100 MG BID ORAL, 150 MG BID ORAL
     Route: 048
     Dates: start: 20090701
  5. FELBATOL [Concomitant]

REACTIONS (1)
  - CONVULSION [None]
